FAERS Safety Report 6332578-5 (Version None)
Quarter: 2009Q3

REPORT INFORMATION
  Report Type: 
  Country: None (occurrence: None)
  Receive Date: 20090827
  Receipt Date: 20090827
  Transmission Date: 20100115
  Serious: Yes (Hospitalization)
  Sender: FDA-Public Use
  Company Number: None

PATIENT
  Sex: Male
  Weight: 90.7194 kg

DRUGS (1)
  1. ALLI [Suspect]
     Indication: WEIGHT DECREASED
     Dates: start: 20070101, end: 20090401

REACTIONS (3)
  - CHOLECYSTECTOMY [None]
  - HEPATIC ENZYME INCREASED [None]
  - PANCREATITIS [None]
